FAERS Safety Report 4588732-6 (Version None)
Quarter: 2005Q1

REPORT INFORMATION
  Report Type: 
  Country: None (occurrence: None)
  Receive Date: 20050216
  Receipt Date: 20050201
  Transmission Date: 20050727
  Serious: Yes (Other)
  Sender: FDA-Public Use
  Company Number: USA041285473

PATIENT
  Age: 57 Year
  Sex: Male
  Weight: 81 kg

DRUGS (10)
  1. CYMBALTA [Suspect]
     Indication: DEPRESSION
     Dosage: 60 MG DAY
     Dates: start: 20040826
  2. EFFEXOR [Concomitant]
  3. TRILEPTAL [Concomitant]
  4. ABILIFY [Concomitant]
  5. INDERAL LA [Concomitant]
  6. VIOXX [Concomitant]
  7. ZANTAC [Concomitant]
  8. ARICEPT [Concomitant]
  9. PLAVIX [Concomitant]
  10. ULTRAM [Concomitant]

REACTIONS (2)
  - BLOOD SODIUM DECREASED [None]
  - CONFUSIONAL STATE [None]
